FAERS Safety Report 8499475-0 (Version None)
Quarter: 2012Q2

REPORT INFORMATION
  Report Type: 
  Country: None (occurrence: None)
  Receive Date: 20120628
  Receipt Date: 20120615
  Transmission Date: 20120825
  Serious: Yes (Death)
  Sender: FDA-Public Use
  Company Number: UTC-019319

PATIENT
  Age: 68 Year
  Sex: Male
  Weight: 82.73 kg

DRUGS (4)
  1. TYVASO [Suspect]
     Indication: PULMONARY ARTERIAL HYPERTENSION
     Dosage: 18 TO 54 MCGS (4 IN 1 D), INHALATION
     Route: 055
     Dates: start: 20100415
  2. COUMADIN [Concomitant]
  3. REVATIO [Concomitant]
  4. LETAIRIS [Concomitant]

REACTIONS (1)
  - TREATMENT NONCOMPLIANCE [None]
